FAERS Safety Report 4432359-3 (Version None)
Quarter: 2004Q3

REPORT INFORMATION
  Report Type: 
  Country: None (occurrence: None)
  Receive Date: 20040820
  Receipt Date: 20040804
  Transmission Date: 20050211
  Serious: Yes (Death, Disabling)
  Sender: FDA-Public Use
  Company Number: 1004307

PATIENT
  Age: 22 Month
  Sex: Female
  Weight: 25 kg

DRUGS (5)
  1. KEPPRA [Suspect]
     Indication: EPILEPSY
     Dosage: 750 MG/ D PO
     Route: 048
     Dates: start: 20010401, end: 20010914
  2. KEPPRA [Suspect]
     Indication: EPILEPSY
     Dosage: 750 MG/ D PO
     Route: 048
     Dates: start: 20010901, end: 20020101
  3. SABRIL [Concomitant]
  4. ORFIRIL [Concomitant]
  5. PETINUTIN [Concomitant]

REACTIONS (10)
  - CHONDROPATHY [None]
  - CONDITION AGGRAVATED [None]
  - CONVULSION [None]
  - DRUG EFFECT DECREASED [None]
  - FEMUR FRACTURE [None]
  - JOINT DISLOCATION [None]
  - LARYNGEAL DISORDER [None]
  - METABOLIC DISORDER [None]
  - PNEUMONIA [None]
  - STRIDOR [None]
